FAERS Safety Report 6727723-3 (Version None)
Quarter: 2010Q2

REPORT INFORMATION
  Report Type: 
  Country: None (occurrence: None)
  Receive Date: 20100512
  Receipt Date: 20100420
  Transmission Date: 20101027
  Serious: Yes (Other)
  Sender: FDA-Public Use
  Company Number: 7001419

PATIENT
  Age: 40 Year
  Sex: Female

DRUGS (2)
  1. REBIF [Suspect]
     Dosage: 22 MCG, 3 IN 1 WK, SUBCUTANEOUS
     Route: 058
     Dates: start: 20040101
  2. REBIF [Suspect]
     Dosage: 22 MCG, 3 IN 1 WK, SUBCUTANEOUS
     Route: 058
     Dates: start: 20060206

REACTIONS (1)
  - MALIGNANT MELANOMA [None]
